FAERS Safety Report 12921919 (Version 1)
Quarter: 2016Q4

REPORT INFORMATION
  Report Type: Spontaneous
  Country: US (occurrence: US)
  Receive Date: 20161108
  Receipt Date: 20161108
  Transmission Date: 20170207
  Serious: No
  Sender: FDA-Public Use
  Company Number: US-BAUSCH-BL-2016-012621

PATIENT
  Age: 58 Year
  Sex: Female

DRUGS (1)
  1. ZIRGAN [Suspect]
     Active Substance: GANCICLOVIR
     Indication: PRODUCT USED FOR UNKNOWN INDICATION
     Dosage: APPLY 1/4 TH INCH RIBBON
     Route: 047
     Dates: start: 20160519, end: 20160526

REACTIONS (4)
  - Prescribed overdose [Unknown]
  - Drug dose omission [Unknown]
  - Product label confusion [Unknown]
  - No adverse event [Unknown]

NARRATIVE: CASE EVENT DATE: 2016
